FAERS Safety Report 24851243 (Version 1)
Quarter: 2025Q1

REPORT INFORMATION
  Report Type: Spontaneous
  Country: FI (occurrence: FI)
  Receive Date: 20250116
  Receipt Date: 20250116
  Transmission Date: 20250409
  Serious: Yes (Disabling)
  Sender: UCB
  Company Number: None

PATIENT
  Age: 54 Year
  Sex: Female

DRUGS (1)
  1. BRIVIACT [Suspect]
     Active Substance: BRIVARACETAM
     Indication: Epilepsy
     Dosage: 25 X 2
     Route: 048

REACTIONS (1)
  - Hallucination, auditory [Recovering/Resolving]

NARRATIVE: CASE EVENT DATE: 20250110
